FAERS Safety Report 9472803 (Version 1)
Quarter: 2013Q3

REPORT INFORMATION
  Report Type: Spontaneous
  Country: US (occurrence: US)
  Receive Date: 20130823
  Receipt Date: 20130823
  Transmission Date: 20140515
  Serious: Yes (Hospitalization)
  Sender: FDA-Public Use
  Company Number: US-GENZYME-RENA-1002042

PATIENT
  Age: 66 Year
  Sex: Male
  Weight: 58.96 kg

DRUGS (13)
  1. RENVELA [Suspect]
     Indication: PRODUCT USED FOR UNKNOWN INDICATION
     Dosage: 0.8 G, UNK
     Route: 065
  2. LYRICA [Suspect]
     Indication: NEUROPATHY PERIPHERAL
     Dosage: 100 MG, BID
     Route: 065
     Dates: start: 2010
  3. LYRICA [Suspect]
     Dosage: 100 MG, TID
     Route: 065
  4. LYRICA [Suspect]
     Dosage: 50 MG, QD
     Route: 065
  5. NEORAL [Suspect]
     Indication: LIVER TRANSPLANT
     Dosage: 150 MG, BID
     Route: 065
  6. OXCARBAZEPINE [Suspect]
     Indication: PRODUCT USED FOR UNKNOWN INDICATION
     Dosage: UNK
     Route: 065
  7. CELLCEPT [Suspect]
     Indication: PRODUCT USED FOR UNKNOWN INDICATION
     Dosage: 250 MG, BID
     Route: 065
  8. PROCARDIA XL [Suspect]
     Indication: PRODUCT USED FOR UNKNOWN INDICATION
     Dosage: 60 MG, BID
     Route: 065
  9. PROCARDIA XL [Suspect]
     Dosage: 60 MG, QD
     Route: 065
  10. COUMADIN [Suspect]
     Indication: PRODUCT USED FOR UNKNOWN INDICATION
     Dosage: 2.5 MG, QD
     Route: 065
  11. METOPROLOL TARTRATE [Suspect]
     Indication: BLOOD PRESSURE
     Dosage: 25 MG, TID
     Route: 065
  12. METOPROLOL TARTRATE [Suspect]
     Dosage: 25 MG, BID
     Route: 065
  13. CELEXA [Suspect]
     Indication: PRODUCT USED FOR UNKNOWN INDICATION
     Dosage: 20 MG, QD
     Route: 065

REACTIONS (4)
  - Renal failure [Unknown]
  - Somnolence [Unknown]
  - Pain in extremity [Unknown]
  - Fall [Unknown]
